FAERS Safety Report 16552570 (Version 2)
Quarter: 2019Q3

REPORT INFORMATION
  Report Type: Spontaneous
  Country: US (occurrence: US)
  Receive Date: 20190710
  Receipt Date: 20190730
  Transmission Date: 20191004
  Serious: No
  Sender: FDA-Public Use
  Company Number: US-PFIZER INC-2019289898

PATIENT
  Age: 64 Year
  Sex: Male

DRUGS (2)
  1. KEYTRUDA [Suspect]
     Active Substance: PEMBROLIZUMAB
     Dosage: UNK (EVERY THREE WEEKS)
     Dates: start: 201906
  2. INLYTA [Suspect]
     Active Substance: AXITINIB
     Indication: RENAL CANCER
     Dosage: 5 MG, 2X/DAY (CYTOTOXIC: TAKE WITH OR WITHOUT FOOD, SWALLOW WHOLE)
     Route: 048
     Dates: start: 201906

REACTIONS (5)
  - Abdominal pain [Unknown]
  - Hypertension [Unknown]
  - Fatigue [Unknown]
  - Dysphonia [Unknown]
  - Eructation [Unknown]
